FAERS Safety Report 24698465 (Version 1)
Quarter: 2024Q4

REPORT INFORMATION
  Report Type: Spontaneous
  Country: US (occurrence: US)
  Receive Date: 20241204
  Receipt Date: 20241204
  Transmission Date: 20250115
  Serious: No
  Sender: NEUROCRINE BIOSCIENCES
  Company Number: US-NEUROCRINE BIOSCIENCES INC.-2024NBI11757

PATIENT
  Age: 87 Year
  Sex: Female

DRUGS (1)
  1. INGREZZA [Suspect]
     Active Substance: VALBENAZINE
     Indication: Tardive dyskinesia
     Dosage: 40 MILLIGRAM, UNK
     Route: 065
     Dates: start: 20241109, end: 20241119

REACTIONS (3)
  - Depression [Unknown]
  - Abnormal behaviour [Unknown]
  - Social problem [Unknown]

NARRATIVE: CASE EVENT DATE: 20241101
